FAERS Safety Report 17480729 (Version 1)
Quarter: 2020Q1

REPORT INFORMATION
  Report Type: Spontaneous
  Country: US (occurrence: US)
  Receive Date: 20200301
  Receipt Date: 20200301
  Transmission Date: 20200409
  Serious: No
  Sender: FDA-Public Use
  Company Number: US-ASTRAZENECA-2020SE20165

PATIENT
  Age: 90 Year
  Sex: Female

DRUGS (1)
  1. TAGRISSO [Suspect]
     Active Substance: OSIMERTINIB
     Indication: EGFR GENE MUTATION
     Dosage: UNKNOWN
     Route: 048

REACTIONS (4)
  - Blood potassium increased [Unknown]
  - Blood sodium decreased [Unknown]
  - Rash [Unknown]
  - Liver function test increased [Unknown]
